FAERS Safety Report 4732585-X (Version None)
Quarter: 2005Q3

REPORT INFORMATION
  Report Type: 
  Country: None (occurrence: None)
  Receive Date: 20050803
  Receipt Date: 20050722
  Transmission Date: 20060218
  Serious: Yes (Hospitalization)
  Sender: FDA-Public Use
  Company Number: NO-JNJFOC-20050704566

PATIENT
  Sex: Female

DRUGS (3)
  1. REMICADE [Suspect]
     Dosage: 8TH INFUSION
     Route: 042
  2. REMICADE [Suspect]
     Indication: ANKYLOSING SPONDYLITIS
     Route: 042
  3. NAPROSYN [Concomitant]
     Indication: PAIN
     Route: 048

REACTIONS (5)
  - BODY TEMPERATURE INCREASED [None]
  - INFUSION RELATED REACTION [None]
  - MUSCLE TWITCHING [None]
  - NAUSEA [None]
  - PYREXIA [None]
